FAERS Safety Report 11927153 (Version 3)
Quarter: 2016Q1

REPORT INFORMATION
  Report Type: Spontaneous
  Country: US (occurrence: US)
  Receive Date: 20160119
  Receipt Date: 20160210
  Transmission Date: 20160526
  Serious: Yes (Death, Other)
  Sender: FDA-Public Use
  Company Number: US-PACIRA PHARMACEUTICALS, INC.-2015EXPUS00432

PATIENT
  Age: 87 Year
  Sex: Female
  Weight: 71 kg

DRUGS (13)
  1. EXPAREL [Suspect]
     Active Substance: BUPIVACAINE
     Indication: NERVE BLOCK
  2. AMIODARONE [Concomitant]
     Active Substance: AMIODARONE
     Dosage: UNK UNK, UNK
     Route: 065
  3. EXPAREL [Suspect]
     Active Substance: BUPIVACAINE
     Indication: POSTOPERATIVE ANALGESIA
     Dosage: 20 ML, 1X
     Route: 065
     Dates: start: 20151005, end: 20151005
  4. ALBUTEROL. [Concomitant]
     Active Substance: ALBUTEROL
     Dosage: UNK UNK, UNK
     Route: 065
  5. NORVASC [Concomitant]
     Active Substance: AMLODIPINE BESYLATE
     Dosage: UNK UNK, UNK
     Route: 065
  6. SIMVASTATIN. [Concomitant]
     Active Substance: SIMVASTATIN
     Dosage: UNK UNK, UNK
     Route: 065
  7. OXYCODONE [Concomitant]
     Active Substance: OXYCODONE
     Dosage: UNK UNK, UNK
     Route: 065
  8. BUPIVACAINE [Concomitant]
     Active Substance: BUPIVACAINE
     Indication: SPINAL ANAESTHESIA
     Dosage: 1.5 ML, 1X SPINAL
     Route: 050
     Dates: start: 20151005
  9. ROPIVACAINE [Concomitant]
     Active Substance: ROPIVACAINE
     Indication: NERVE BLOCK
     Dosage: 20 ML, UNK
     Route: 050
     Dates: start: 20151005
  10. ROBAXIN [Concomitant]
     Active Substance: METHOCARBAMOL
  11. DABIGATRAN [Concomitant]
     Active Substance: DABIGATRAN
     Dosage: UNK UNK, UNK
     Route: 065
  12. DABIGATRAN [Concomitant]
     Active Substance: DABIGATRAN
     Dosage: UNK UNK, UNK
     Route: 065
  13. LEVOTHYROXINE. [Concomitant]
     Active Substance: LEVOTHYROXINE
     Dosage: UNK UNK, UNK
     Route: 065

REACTIONS (7)
  - Atrial fibrillation [Unknown]
  - Cardiac arrest [Fatal]
  - Hypotension [Unknown]
  - Shock [Fatal]
  - Acute kidney injury [Unknown]
  - Mental status changes [Unknown]
  - Seizure like phenomena [Unknown]

NARRATIVE: CASE EVENT DATE: 20151006
